FAERS Safety Report 5254703-X (Version None)
Quarter: 2007Q1

REPORT INFORMATION
  Report Type: 
  Country: None (occurrence: None)
  Receive Date: 20070227
  Receipt Date: 20070212
  Transmission Date: 20070707
  Serious: Yes (Hospitalization)
  Sender: FDA-Public Use
  Company Number: 236438

PATIENT
  Age: 62 Year
  Sex: Male

DRUGS (1)
  1. AVASTIN [Suspect]
     Indication: COLON CANCER METASTATIC
     Dosage: 600 MG
     Dates: start: 20060601

REACTIONS (4)
  - FAECES DISCOLOURED [None]
  - HAEMATEMESIS [None]
  - PYREXIA [None]
  - VARICES OESOPHAGEAL [None]
